FAERS Safety Report 23170927 (Version 1)
Quarter: 2023Q4

REPORT INFORMATION
  Report Type: Report from Study
  Country: US (occurrence: US)
  Receive Date: 20231110
  Receipt Date: 20231110
  Transmission Date: 20240110
  Serious: Yes (Other)
  Sender: FDA-Public Use
  Company Number: US-ALXN-A202301860

PATIENT
  Age: 48 Year
  Sex: Male
  Weight: 174.1 kg

DRUGS (19)
  1. ULTOMIRIS [Suspect]
     Active Substance: RAVULIZUMAB-CWVZ
     Indication: Myasthenia gravis
     Dosage: UNK, EVERY 8 WEEKS
     Route: 065
  2. ULTOMIRIS [Suspect]
     Active Substance: RAVULIZUMAB-CWVZ
     Dosage: 100 MG, EVERY 2 MONTHS
     Route: 042
     Dates: start: 20220726
  3. ULTOMIRIS [Suspect]
     Active Substance: RAVULIZUMAB-CWVZ
     Dosage: 300 MG, EVERY 8 WEEKS
     Route: 042
  4. BENADRYL [Suspect]
     Active Substance: DIPHENHYDRAMINE HYDROCHLORIDE
     Indication: Product used for unknown indication
     Dosage: UNK
     Route: 065
  5. TACROLIMUS [Suspect]
     Active Substance: TACROLIMUS
     Indication: Product used for unknown indication
     Dosage: UNK
     Route: 065
  6. TACROLIMUS [Suspect]
     Active Substance: TACROLIMUS
     Dosage: 3 MG, QD
     Route: 065
  7. TACROLIMUS [Suspect]
     Active Substance: TACROLIMUS
     Dosage: 4 MG, QD
     Route: 065
  8. CELLCEPT [Suspect]
     Active Substance: MYCOPHENOLATE MOFETIL
     Indication: Product used for unknown indication
     Dosage: 5 ML (1000 MG TOAL), BID
     Route: 048
  9. CHILDRENS TYLENOL [Concomitant]
     Active Substance: ACETAMINOPHEN
     Indication: Product used for unknown indication
     Dosage: 720 ML, PRN
     Route: 048
  10. TRULICITY [Concomitant]
     Active Substance: DULAGLUTIDE
     Indication: Product used for unknown indication
     Dosage: 4.5 MG, QW
     Route: 058
  11. LEXAPRO [Concomitant]
     Active Substance: ESCITALOPRAM OXALATE
     Indication: Product used for unknown indication
     Dosage: 10 MG, QD
     Route: 048
     Dates: start: 20211130
  12. GALCANEZUMAB [Concomitant]
     Active Substance: GALCANEZUMAB
     Indication: Product used for unknown indication
     Dosage: 120 MG, QMONTH
     Route: 058
     Dates: start: 20220930
  13. ADVIL JUNIOR STRENGTH [Concomitant]
     Indication: Product used for unknown indication
     Dosage: 600 MG, UNK
     Route: 048
  14. ZESTRIL [Concomitant]
     Active Substance: LISINOPRIL
     Indication: Product used for unknown indication
     Dosage: 10 MG, QD
     Route: 048
  15. ZESTRIL [Concomitant]
     Active Substance: LISINOPRIL
     Dosage: 20 MG, QD
     Route: 048
  16. MIRALAX [Concomitant]
     Active Substance: POLYETHYLENE GLYCOL 3350
     Indication: Product used for unknown indication
     Dosage: 17 G, QD
     Route: 048
     Dates: start: 20210119
  17. RIMEGEPANT [Concomitant]
     Active Substance: RIMEGEPANT
     Indication: Product used for unknown indication
     Dosage: 75 MG, UNK
     Route: 048
     Dates: start: 20230522
  18. MAXALT-MLT [Concomitant]
     Active Substance: RIZATRIPTAN BENZOATE
     Indication: Product used for unknown indication
     Dosage: 10 MG, PRN
     Route: 048
     Dates: start: 20211217
  19. PROGRAF [Concomitant]
     Active Substance: TACROLIMUS
     Indication: Product used for unknown indication
     Dosage: 2 DF, Q12H
     Route: 048
     Dates: start: 20230517

REACTIONS (29)
  - Loss of consciousness [Unknown]
  - Staphylococcal skin infection [Recovered/Resolved]
  - Gait disturbance [Unknown]
  - Blister [Unknown]
  - Eyelid ptosis [Recovering/Resolving]
  - Anal incontinence [Recovered/Resolved]
  - Dysphagia [Recovering/Resolving]
  - Visual impairment [Not Recovered/Not Resolved]
  - Photophobia [Not Recovered/Not Resolved]
  - Tremor [Not Recovered/Not Resolved]
  - Glare [Unknown]
  - Mastication disorder [Unknown]
  - Dyspnoea exertional [Recovering/Resolving]
  - Diplopia [Recovering/Resolving]
  - Facial paresis [Unknown]
  - Sensory loss [Unknown]
  - Hyporeflexia [Unknown]
  - Obstructive sleep apnoea syndrome [Unknown]
  - Obstructive airways disorder [Unknown]
  - Weight abnormal [Unknown]
  - Off label use [Unknown]
  - Cough [Unknown]
  - Bronchospasm [Unknown]
  - Asthenopia [Unknown]
  - Dizziness [Recovering/Resolving]
  - Arthralgia [Unknown]
  - Fatigue [Not Recovered/Not Resolved]
  - Headache [Unknown]
  - Migraine [Not Recovered/Not Resolved]

NARRATIVE: CASE EVENT DATE: 20230124
